FAERS Safety Report 5504708-6 (Version None)
Quarter: 2007Q4

REPORT INFORMATION
  Report Type: 
  Country: None (occurrence: None)
  Receive Date: 20071031
  Receipt Date: 20070612
  Transmission Date: 20080405
  Serious: Yes (Other)
  Sender: FDA-Public Use
  Company Number: A-US2007-18235

PATIENT
  Age: 6 Year
  Sex: Male

DRUGS (4)
  1. VENTAVIS [Suspect]
     Indication: PULMONARY HYPERTENSION
     Dosage: 6 X DAY, RESPIRATORY
     Route: 055
  2. DOBUTAMINE (DOBUTAMINE) [Concomitant]
  3. SULFACARBAMIDE (SULFACARBAMIDE) [Concomitant]
  4. CEFOPRAZONE (CEFOPERAZONE) [Concomitant]

REACTIONS (2)
  - DYSURIA [None]
  - HAEMATURIA [None]
